FAERS Safety Report 12288958 (Version 1)
Quarter: 2016Q2

REPORT INFORMATION
  Report Type: Spontaneous
  Country: GB (occurrence: GB)
  Receive Date: 20160421
  Receipt Date: 20160421
  Transmission Date: 20160815
  Serious: Yes (Disabling)
  Sender: FDA-Public Use
  Company Number: GB-ROCHE-1743561

PATIENT
  Age: 71 Year
  Sex: Male

DRUGS (9)
  1. SULFASALAZINE. [Concomitant]
     Active Substance: SULFASALAZINE
     Route: 065
  2. OMEPRAZOLE. [Concomitant]
     Active Substance: OMEPRAZOLE
     Route: 065
  3. TRAMADOL. [Concomitant]
     Active Substance: TRAMADOL
     Route: 065
  4. SIMVASTATIN. [Concomitant]
     Active Substance: SIMVASTATIN
     Route: 065
  5. RITUXIMAB [Suspect]
     Active Substance: RITUXIMAB
     Indication: RHEUMATOID ARTHRITIS
     Dosage: RECEIVED 4 COURSES OF THIS IN TOTAL 2009, 2011, 2013 AND 2016 FEBRUARY.
     Route: 065
     Dates: start: 20091203, end: 2016
  6. CALCICHEW D3 [Concomitant]
     Active Substance: CALCIUM\CHOLECALCIFEROL
     Route: 065
  7. ASPIRIN. [Concomitant]
     Active Substance: ASPIRIN
     Route: 065
  8. RAMIPRIL. [Concomitant]
     Active Substance: RAMIPRIL
     Route: 065
  9. LEFLUNOMID [Concomitant]
     Active Substance: LEFLUNOMIDE
     Route: 065

REACTIONS (5)
  - Aphasia [Not Recovered/Not Resolved]
  - Dementia with Lewy bodies [Not Recovered/Not Resolved]
  - Frontotemporal dementia [Not Recovered/Not Resolved]
  - Nervous system disorder [Not Recovered/Not Resolved]
  - Progressive bulbar palsy [Not Recovered/Not Resolved]

NARRATIVE: CASE EVENT DATE: 20100101
